FAERS Safety Report 10932882 (Version 1)
Quarter: 2015Q1

REPORT INFORMATION
  Report Type: Spontaneous
  Country: US (occurrence: None)
  Receive Date: 20150319
  Receipt Date: 20150319
  Transmission Date: 20150721
  Serious: No
  Sender: FDA-Public Use
  Company Number: 2014CT000216

PATIENT
  Sex: Female

DRUGS (20)
  1. PATANOL [Concomitant]
     Active Substance: OLOPATADINE HYDROCHLORIDE
  2. SPIRONOLACTONE. [Concomitant]
     Active Substance: SPIRONOLACTONE
  3. ESTROGEN [Concomitant]
     Active Substance: ESTRONE\SUS SCROFA OVARY
  4. DYMISTA [Concomitant]
     Active Substance: AZELASTINE HYDROCHLORIDE\FLUTICASONE PROPIONATE
  5. NASONEX [Concomitant]
     Active Substance: MOMETASONE FUROATE
  6. DOXYCYCLINE. [Concomitant]
     Active Substance: DOXYCYCLINE
  7. NUVIGIL [Concomitant]
     Active Substance: ARMODAFINIL
  8. REFRESH /00007001/ [Concomitant]
  9. RESTASIS [Concomitant]
     Active Substance: CYCLOSPORINE
  10. METAMUCIL [Concomitant]
     Active Substance: PLANTAGO SEED
  11. ALREX /00595201/ [Concomitant]
  12. LATISSE [Concomitant]
     Active Substance: BIMATOPROST
  13. KORLYM [Suspect]
     Active Substance: MIFEPRISTONE
     Indication: CUSHING^S SYNDROME
     Route: 048
     Dates: start: 20141108
  14. MENS ROGAINE UNSCENTED FORMULA [Concomitant]
     Active Substance: MINOXIDIL
  15. TRAZODONE [Concomitant]
     Active Substance: TRAZODONE HYDROCHLORIDE
  16. RETIN-A [Concomitant]
     Active Substance: TRETINOIN
  17. KORLYM [Suspect]
     Active Substance: MIFEPRISTONE
     Indication: HYPERADRENALISM
     Route: 048
     Dates: start: 20141108
  18. MUCINEX [Concomitant]
     Active Substance: GUAIFENESIN
  19. SINGULAIR [Concomitant]
     Active Substance: MONTELUKAST SODIUM
  20. PROMETRIUM [Concomitant]
     Active Substance: PROGESTERONE

REACTIONS (3)
  - Pain in extremity [None]
  - Breast tenderness [None]
  - Headache [None]
